FAERS Safety Report 7160115-4 (Version None)
Quarter: 2010Q4

REPORT INFORMATION
  Report Type: 
  Country: None (occurrence: None)
  Receive Date: 20101214
  Receipt Date: 20091129
  Transmission Date: 20110411
  Serious: Yes (Hospitalization, Other)
  Sender: FDA-Public Use
  Company Number: US-AMGEN-QUU377275

PATIENT

DRUGS (2)
  1. ENBREL [Suspect]
     Indication: RHEUMATOID ARTHRITIS
     Dosage: 50 MG, QWK
     Route: 058
     Dates: start: 20080101
  2. EXENATIDE [Concomitant]

REACTIONS (9)
  - ANAPHYLACTIC REACTION [None]
  - DIABETES MELLITUS [None]
  - FALL [None]
  - INFLUENZA [None]
  - INJECTION SITE PAIN [None]
  - JOINT SWELLING [None]
  - LIMB INJURY [None]
  - PAIN IN EXTREMITY [None]
  - PANCREATITIS [None]
